FAERS Safety Report 8976011 (Version 1)
Quarter: 2012Q4

REPORT INFORMATION
  Report Type: 
  Country: GB (occurrence: GB)
  Receive Date: 20121219
  Receipt Date: 20121219
  Transmission Date: 20130627
  Serious: Yes (Hospitalization)
  Sender: FDA-Public Use
  Company Number: PHHY2012GB114464

PATIENT
  Age: 55 Year
  Sex: Female

DRUGS (7)
  1. AMITRIPTYLINE [Suspect]
     Indication: MIGRAINE
     Dosage: 1 DF, UNK
  2. MEFENAMIC ACID [Suspect]
     Indication: MIGRAINE
     Dosage: 1 DF, UNK
  3. CETIRIZINE [Suspect]
     Indication: MIGRAINE
     Dosage: 1 DF, UNK
  4. CAFFEINE [Suspect]
     Indication: MIGRAINE
     Dosage: 1 DF, UNK
  5. REYATAZ [Suspect]
     Indication: HIV INFECTION
     Route: 048
     Dates: start: 201103, end: 201205
  6. ABACAVIR W/LAMIVUDINE [Suspect]
     Indication: HIV INFECTION
     Dosage: 1 DF, QD
     Route: 048
     Dates: start: 201103, end: 201205
  7. RITONAVIR [Suspect]
     Indication: HIV INFECTION
     Route: 048
     Dates: start: 201103, end: 201205

REACTIONS (5)
  - Lactic acidosis [Recovered/Resolved]
  - Nausea [Recovered/Resolved]
  - Vomiting [Recovered/Resolved]
  - Mononeuropathy multiplex [Recovering/Resolving]
  - Paraesthesia [Recovered/Resolved]
